FAERS Safety Report 9026689 (Version 1)
Quarter: 2013Q1

REPORT INFORMATION
  Report Type: Spontaneous
  Country: US (occurrence: None)
  Receive Date: 20130114
  Receipt Date: 20130114
  Transmission Date: 20140127
  Serious: Yes (Other)
  Sender: FDA-Public Use
  Company Number: None

PATIENT
  Age: 58 Year
  Sex: Female
  Weight: 54.43 kg

DRUGS (1)
  1. VALACYCLOVIR [Suspect]
     Indication: HERPES VIRUS INFECTION
     Route: 048
     Dates: start: 20121201, end: 20121207

REACTIONS (3)
  - Agitation [None]
  - Aggression [None]
  - Irritability [None]
